FAERS Safety Report 12160727 (Version 2)
Quarter: 2016Q1

REPORT INFORMATION
  Report Type: Spontaneous
  Country: AU (occurrence: AU)
  Receive Date: 20160308
  Receipt Date: 20160318
  Transmission Date: 20160526
  Serious: Yes (Hospitalization)
  Sender: FDA-Public Use
  Company Number: AU-BAYER-2016-045546

PATIENT

DRUGS (1)
  1. ULTRAVIST [Suspect]
     Active Substance: IOPROMIDE
     Dosage: UNK
     Dates: start: 20151106

REACTIONS (11)
  - Tongue disorder [None]
  - Seizure [None]
  - Dizziness [None]
  - Hot flush [None]
  - Feeling cold [None]
  - Paraesthesia oral [None]
  - Blood pressure increased [None]
  - Dyspnoea [None]
  - Tremor [None]
  - Dry mouth [None]
  - Palpitations [None]

NARRATIVE: CASE EVENT DATE: 20151106
